FAERS Safety Report 14076631 (Version 2)
Quarter: 2017Q4

REPORT INFORMATION
  Report Type: Spontaneous
  Country: US (occurrence: US)
  Receive Date: 20171011
  Receipt Date: 20171108
  Transmission Date: 20180321
  Serious: No
  Sender: FDA-Public Use
  Company Number: US-GE HEALTHCARE LIFE SCIENCES-2017CSU002908

PATIENT
  Age: 57 Year
  Sex: Female

DRUGS (1)
  1. OMNIPAQUE [Suspect]
     Active Substance: IOHEXOL
     Indication: HEPATECTOMY
     Dosage: 100 ML (3 CC/SEC), SINGLE
     Route: 042
     Dates: start: 20170908, end: 20170908

REACTIONS (1)
  - Infusion site extravasation [Recovered/Resolved]

NARRATIVE: CASE EVENT DATE: 20170908
